FAERS Safety Report 6419168-0 (Version None)
Quarter: 2009Q4

REPORT INFORMATION
  Report Type: 
  Country: None (occurrence: None)
  Receive Date: 20091029
  Receipt Date: 20091014
  Transmission Date: 20100525
  Serious: Yes (Other)
  Sender: FDA-Public Use
  Company Number: PHHY2009CA44970

PATIENT

DRUGS (3)
  1. ALISKIREN ALI+ [Suspect]
     Dosage: 150 MG, UNK
  2. ARA-C [Concomitant]
  3. DIURETICS [Concomitant]

REACTIONS (3)
  - ASTHENIA [None]
  - DRUG INEFFECTIVE [None]
  - TACHYCARDIA [None]
